FAERS Safety Report 8068630-6 (Version None)
Quarter: 2012Q1

REPORT INFORMATION
  Report Type: 
  Country: None (occurrence: None)
  Receive Date: 20120124
  Receipt Date: 20111114
  Transmission Date: 20120608
  Serious: No
  Sender: FDA-Public Use
  Company Number: US-AMGEN-USASP2011060001

PATIENT
  Age: 77 Year
  Sex: Female

DRUGS (1)
  1. PROLIA [Suspect]
     Indication: OSTEOPOROSIS POSTMENOPAUSAL
     Dosage: 60 MG, Q6MO
     Dates: start: 20111004

REACTIONS (5)
  - GAIT DISTURBANCE [None]
  - BONE PAIN [None]
  - INCORRECT DOSE ADMINISTERED [None]
  - EXERCISE TOLERANCE DECREASED [None]
  - ARTHRALGIA [None]
